FAERS Safety Report 6451261-9 (Version None)
Quarter: 2009Q4

REPORT INFORMATION
  Report Type: 
  Country: None (occurrence: None)
  Receive Date: 20091123
  Receipt Date: 20091111
  Transmission Date: 20100525
  Serious: Yes (Hospitalization)
  Sender: FDA-Public Use
  Company Number: US-CELGENEUS-163-21880-09110888

PATIENT
  Sex: Male

DRUGS (3)
  1. REVLIMID [Suspect]
     Indication: MULTIPLE MYELOMA
     Route: 048
     Dates: start: 20090901
  2. REVLIMID [Suspect]
     Dosage: 10-20MG
     Route: 048
     Dates: start: 20090301, end: 20090901
  3. REVLIMID [Suspect]
     Route: 048
     Dates: start: 20081001, end: 20090301

REACTIONS (1)
  - MOTOR DYSFUNCTION [None]
